FAERS Safety Report 9263538 (Version 1)
Quarter: 2013Q2

REPORT INFORMATION
  Report Type: Spontaneous
  Country: US (occurrence: DE)
  Receive Date: 20130430
  Receipt Date: 20130430
  Transmission Date: 20140414
  Serious: Yes (Other)
  Sender: FDA-Public Use
  Company Number: DE-PFIZER INC-2013128183

PATIENT
  Age: 79 Year
  Sex: Female

DRUGS (5)
  1. METFORMIN HCL [Suspect]
     Indication: TYPE 2 DIABETES MELLITUS
     Dosage: 2 X 850 MG
  2. HYDROCHLOROTHIAZIDE/QUINAPRIL HYDROCHLORIDE [Suspect]
     Indication: HYPERTENSION
     Dosage: 10 MG/12.5 MG, 1 TABLET DAILY
  3. DICLOFENAC [Suspect]
     Indication: BACK PAIN
     Dosage: UNK
  4. NITROFURANTIN [Concomitant]
     Indication: URINARY TRACT INFECTION
     Dosage: 50 MG
  5. PYRIDOXINE HYDROCHLORIDE [Concomitant]
     Indication: URINARY TRACT INFECTION
     Dosage: 7 MG DAILY

REACTIONS (1)
  - Hypoglycaemia [Recovered/Resolved]
